FAERS Safety Report 10252404 (Version 3)
Quarter: 2015Q3

REPORT INFORMATION
  Report Type: Spontaneous
  Country: US (occurrence: US)
  Receive Date: 20140623
  Receipt Date: 20150806
  Transmission Date: 20151125
  Serious: Yes (Other)
  Sender: FDA-Public Use
  Company Number: US-BAYER-2014-091412

PATIENT
  Age: 31 Year
  Sex: Female
  Weight: 95 kg

DRUGS (5)
  1. FISH OIL [Concomitant]
     Active Substance: FISH OIL
     Dosage: UNK
     Route: 048
     Dates: start: 201301
  2. FLAXSEED [Concomitant]
     Active Substance: FLAX SEED
     Dosage: UNK
     Route: 048
     Dates: start: 201301
  3. VITAMIN C [Concomitant]
     Active Substance: ASCORBIC ACID
     Dosage: UNK
     Route: 048
     Dates: start: 2008
  4. OCELLA [Suspect]
     Active Substance: DROSPIRENONE\ETHINYL ESTRADIOL
     Indication: DYSMENORRHOEA
  5. OCELLA [Suspect]
     Active Substance: DROSPIRENONE\ETHINYL ESTRADIOL
     Indication: CONTRACEPTION
     Dosage: UNK
     Dates: start: 2011, end: 2013

REACTIONS (11)
  - Hepatic function abnormal [None]
  - Anxiety [None]
  - Off label use [None]
  - Thrombosis [None]
  - Injury [None]
  - Deep vein thrombosis [None]
  - Emotional distress [None]
  - Hepatic steatosis [None]
  - Post thrombotic syndrome [None]
  - Pain [None]
  - General physical health deterioration [None]

NARRATIVE: CASE EVENT DATE: 20130207
